FAERS Safety Report 9194301 (Version 2)
Quarter: 2013Q2

REPORT INFORMATION
  Report Type: Spontaneous
  Country: US (occurrence: US)
  Receive Date: 20130327
  Receipt Date: 20130419
  Transmission Date: 20140414
  Serious: Yes (Hospitalization)
  Sender: FDA-Public Use
  Company Number: US-GILEAD-2013-0072434

PATIENT
  Age: 46 Year
  Sex: Male

DRUGS (2)
  1. LETAIRIS [Suspect]
     Indication: PULMONARY HYPERTENSION
     Dosage: 10 MG, UNK
     Route: 048
     Dates: start: 20110809
  2. LETAIRIS [Suspect]
     Indication: MUSCULAR DYSTROPHY

REACTIONS (2)
  - Gastrointestinal ulcer haemorrhage [Unknown]
  - Local swelling [Unknown]
